FAERS Safety Report 22359265 (Version 1)
Quarter: 2023Q2

REPORT INFORMATION
  Report Type: Report from Study
  Country: AU (occurrence: AU)
  Receive Date: 20230524
  Receipt Date: 20230524
  Transmission Date: 20230721
  Serious: Yes (Other)
  Sender: FDA-Public Use
  Company Number: AU-BAYER-2023A070035

PATIENT
  Sex: Female

DRUGS (1)
  1. EYLEA [Suspect]
     Active Substance: AFLIBERCEPT
     Indication: Product used for unknown indication
     Dosage: SOLUTION FOR INJECTION, 40MG/ML
     Route: 031

REACTIONS (2)
  - Diabetic retinal oedema [Unknown]
  - Unknown schedule of product administration [Unknown]
